FAERS Safety Report 7776521-0 (Version None)
Quarter: 2011Q3

REPORT INFORMATION
  Report Type: 
  Country: None (occurrence: None)
  Receive Date: 20110926
  Receipt Date: 20110920
  Transmission Date: 20111222
  Serious: Yes (Death, Other)
  Sender: FDA-Public Use
  Company Number: US-AMGEN-USASP2011048733

PATIENT
  Sex: Male

DRUGS (4)
  1. IVIGLOB-EX [Concomitant]
     Indication: IDIOPATHIC THROMBOCYTOPENIC PURPURA
  2. RITUXIMAB [Concomitant]
     Indication: IDIOPATHIC THROMBOCYTOPENIC PURPURA
  3. CORTICOSTEROIDS [Concomitant]
     Indication: IDIOPATHIC THROMBOCYTOPENIC PURPURA
  4. NPLATE [Suspect]
     Indication: IDIOPATHIC THROMBOCYTOPENIC PURPURA
     Dosage: 5 MUG/KG, UNK
     Dates: start: 20110121, end: 20110126

REACTIONS (3)
  - THROMBOCYTOPENIA [None]
  - ACUTE RESPIRATORY DISTRESS SYNDROME [None]
  - PULMONARY ALVEOLAR HAEMORRHAGE [None]
